FAERS Safety Report 9382087 (Version 2)
Quarter: 2013Q3

REPORT INFORMATION
  Report Type: Spontaneous
  Country: JP (occurrence: JP)
  Receive Date: 20130703
  Receipt Date: 20130705
  Transmission Date: 20140515
  Serious: Yes (Death, Hospitalization)
  Sender: FDA-Public Use
  Company Number: PHHY2013JP068670

PATIENT
  Age: 55 Year
  Sex: Female

DRUGS (3)
  1. ETOPOSIDE SANDOZ [Suspect]
     Indication: HISTIOCYTOSIS HAEMATOPHAGIC
  2. CICLOSPORIN [Suspect]
     Indication: HISTIOCYTOSIS HAEMATOPHAGIC
  3. STEROIDS NOS [Suspect]
     Indication: HISTIOCYTOSIS HAEMATOPHAGIC

REACTIONS (3)
  - Systemic mycosis [Fatal]
  - Multi-organ failure [Fatal]
  - Neutropenia [Fatal]
